FAERS Safety Report 15941640 (Version 5)
Quarter: 2019Q1

REPORT INFORMATION
  Report Type: Report from Study
  Country: IE (occurrence: IE)
  Receive Date: 20190208
  Receipt Date: 20190311
  Transmission Date: 20190417
  Serious: Yes (Hospitalization, Other)
  Sender: FDA-Public Use
  Company Number: IE-MYLANLABS-2019M1012010

PATIENT
  Age: 87 Year
  Sex: Male

DRUGS (11)
  1. CIPROFLOXACIN. [Suspect]
     Active Substance: CIPROFLOXACIN
     Indication: POST PROCEDURAL INFECTION
     Dosage: 400 MILLIGRAM, BID
     Route: 042
     Dates: start: 20120703, end: 20120709
  2. ASPIRIN                            /00002701/ [Suspect]
     Active Substance: ASPIRIN
     Indication: CORONARY ARTERY STENOSIS
     Dosage: 75 MG, QD
     Route: 048
  3. CIPROFLOXACIN. [Suspect]
     Active Substance: CIPROFLOXACIN
     Indication: POST PROCEDURAL INFECTION
     Dosage: 003JUL12-09JUL2012:500MG:2/DAY  UNK:UNK:250MG:2/DAY
     Route: 048
     Dates: start: 2013, end: 2013
  4. CIPROFLOXACIN. [Suspect]
     Active Substance: CIPROFLOXACIN
     Indication: POST PROCEDURAL HAEMORRHAGE
     Dosage: 250 MILLIGRAM, BID
     Route: 048
     Dates: start: 2013, end: 2013
  5. ENOXAPARIN [Concomitant]
     Active Substance: ENOXAPARIN
     Indication: PRODUCT USED FOR UNKNOWN INDICATION
     Dosage: UNK
     Route: 065
  6. ASPIRIN                            /00002701/ [Concomitant]
     Active Substance: ASPIRIN
     Dosage: 75 MILLIGRAM, QD
  7. CIPROFLOXACIN. [Suspect]
     Active Substance: CIPROFLOXACIN
     Dosage: 03JUL12-09JUL2012:400MG:2/DAY  UNK:UNK:250MG:2/DAY
     Route: 048
     Dates: start: 2013, end: 2013
  8. CIPROFLOXACIN. [Suspect]
     Active Substance: CIPROFLOXACIN
     Dosage: 400 MILLIGRAM, BID
     Route: 048
     Dates: start: 20120703, end: 20120709
  9. ELIQUIS [Suspect]
     Active Substance: APIXABAN
     Indication: DEEP VEIN THROMBOSIS
     Dosage: 2.5 MG, BID
     Route: 048
     Dates: start: 20130624
  10. ELIQUIS [Suspect]
     Active Substance: APIXABAN
     Indication: THROMBOSIS PROPHYLAXIS
  11. HEPARIN [Concomitant]
     Active Substance: HEPARIN SODIUM
     Indication: PRODUCT USED FOR UNKNOWN INDICATION
     Dosage: UNK
     Route: 058

REACTIONS (5)
  - Angina pectoris [Unknown]
  - Wound infection [Recovered/Resolved]
  - Renal failure [Recovered/Resolved]
  - Post procedural haemorrhage [Unknown]
  - Tendon rupture [Unknown]

NARRATIVE: CASE EVENT DATE: 2013
